FAERS Safety Report 18506975 (Version 1)
Quarter: 2020Q4

REPORT INFORMATION
  Report Type: Spontaneous
  Country: US (occurrence: US)
  Receive Date: 20201114
  Receipt Date: 20201114
  Transmission Date: 20210114
  Serious: Yes (Other)
  Sender: FDA-Public Use
  Company Number: None

PATIENT
  Age: 41 Year
  Sex: Male
  Weight: 126 kg

DRUGS (4)
  1. EMERGEN C [Concomitant]
     Active Substance: MINERALS\VITAMINS
  2. OMEPRAZOL [Concomitant]
     Active Substance: OMEPRAZOLE
  3. LISINOPRIL -HCTZ [Suspect]
     Active Substance: HYDROCHLOROTHIAZIDE\LISINOPRIL
     Indication: BLOOD PRESSURE ABNORMAL
     Dosage: ?          QUANTITY:1 TABLET(S);?
     Route: 048
     Dates: end: 20201114
  4. FLUCONAZOLE. [Concomitant]
     Active Substance: FLUCONAZOLE

REACTIONS (2)
  - Muscle spasms [None]
  - Paralysis [None]

NARRATIVE: CASE EVENT DATE: 20201114
